FAERS Safety Report 9193905 (Version 2)
Quarter: 2013Q2

REPORT INFORMATION
  Report Type: Spontaneous
  Country: US (occurrence: None)
  Receive Date: 20130325
  Receipt Date: 20130429
  Transmission Date: 20140414
  Serious: Yes (Hospitalization)
  Sender: FDA-Public Use
  Company Number: 2013SGN00134

PATIENT
  Age: 23 Year
  Sex: Male

DRUGS (5)
  1. BRENTUXIMAB VEDOTIN [Suspect]
     Indication: HODGKIN^S DISEASE
     Dosage: 113MG, QWEEK
     Dates: start: 20130104, end: 20130215
  2. IFOSFAMIDE [Suspect]
     Indication: HODGKIN^S DISEASE
     Dosage: 5000 MG/M2
     Dates: start: 20130223, end: 20130224
  3. CARBOPLATIN (CARBOPLATIN) [Suspect]
     Indication: HODGKIN^S DISEASE
     Dates: start: 20130225, end: 20130225
  4. ETOPOSIDE [Suspect]
     Indication: HODGKIN^S DISEASE
     Dates: start: 20130223, end: 20130224
  5. MESNA [Suspect]
     Indication: HODGKIN^S DISEASE
     Dates: start: 20130223, end: 20130224

REACTIONS (1)
  - Febrile neutropenia [None]
